FAERS Safety Report 14526037 (Version 1)
Quarter: 2018Q1

REPORT INFORMATION
  Report Type: Spontaneous
  Country: FR (occurrence: FR)
  Receive Date: 20180213
  Receipt Date: 20180213
  Transmission Date: 20180509
  Serious: Yes (Other)
  Sender: FDA-Public Use
  Company Number: FR-TEVA-2018-FR-854672

PATIENT
  Age: 85 Year
  Sex: Female

DRUGS (2)
  1. DILTIAZEM HYDROCHLORIDE. [Suspect]
     Active Substance: DILTIAZEM HYDROCHLORIDE
     Indication: HYPERTENSION
     Dosage: 1 DOSAGE FORMS DAILY; 1 DF, QD (IN THE MORNING )
     Route: 065
  2. URAPIDIL [Concomitant]
     Active Substance: URAPIDIL
     Indication: PRODUCT USED FOR UNKNOWN INDICATION
     Dosage: 2 DOSAGE FORMS DAILY; 2 DF, QD
     Route: 065

REACTIONS (2)
  - Rash papular [Not Recovered/Not Resolved]
  - Vein rupture [Not Recovered/Not Resolved]
